FAERS Safety Report 9934493 (Version 1)
Quarter: 2014Q1

REPORT INFORMATION
  Report Type: Spontaneous
  Country: DE (occurrence: DE)
  Receive Date: 20140228
  Receipt Date: 20140228
  Transmission Date: 20141002
  Serious: Yes (Other)
  Sender: FDA-Public Use
  Company Number: DE-ABBVIE-14P-062-1207721-00

PATIENT
  Age: 48 Year
  Sex: Female

DRUGS (1)
  1. TESTOGEL [Suspect]
     Indication: TRANS-SEXUALISM
     Route: 062
     Dates: start: 2004

REACTIONS (4)
  - Hepatic steatosis [Not Recovered/Not Resolved]
  - Liver function test abnormal [Not Recovered/Not Resolved]
  - Lipids increased [Not Recovered/Not Resolved]
  - Off label use [Not Recovered/Not Resolved]
